FAERS Safety Report 25648866 (Version 1)
Quarter: 2025Q3

REPORT INFORMATION
  Report Type: Spontaneous
  Country: CN (occurrence: CN)
  Receive Date: 20250806
  Receipt Date: 20250806
  Transmission Date: 20251020
  Serious: Yes (Other)
  Sender: NOVARTIS
  Company Number: CN-002147023-NVSC2025CN123210

PATIENT

DRUGS (1)
  1. ENTRESTO [Suspect]
     Active Substance: SACUBITRIL\VALSARTAN
     Indication: Product used for unknown indication
     Route: 048
     Dates: start: 20250722, end: 20250731

REACTIONS (2)
  - Laryngeal oedema [Recovering/Resolving]
  - Oedema [Recovering/Resolving]

NARRATIVE: CASE EVENT DATE: 20250731
